FAERS Safety Report 8822831 (Version 2)
Quarter: 2012Q4

REPORT INFORMATION
  Report Type: 
  Country: US (occurrence: US)
  Receive Date: 20121003
  Receipt Date: 20121004
  Transmission Date: 20130627
  Serious: No
  Sender: FDA-Public Use
  Company Number: US-JNJFOC-20120909589

PATIENT
  Sex: Male
  Weight: 85.28 kg

DRUGS (12)
  1. SANDOZ FENTANYL TRANSDERMAL SYSTEM [Suspect]
     Indication: RENAL CANCER
     Route: 062
     Dates: start: 201208
  2. OXYCODONE [Concomitant]
     Indication: BREAKTHROUGH PAIN
     Dosage: 4-6 hour as needed
     Route: 048
     Dates: start: 201206
  3. SOMA [Concomitant]
     Indication: MYALGIA
     Dosage: as needed
     Route: 048
     Dates: start: 2008
  4. XANAX [Concomitant]
     Indication: ANXIETY
     Route: 048
     Dates: start: 201206
  5. SIMVASTATIN [Concomitant]
     Indication: BLOOD CHOLESTEROL INCREASED
     Route: 048
     Dates: start: 2010
  6. WARFARIN [Concomitant]
     Indication: ANTICOAGULANT THERAPY
     Route: 048
     Dates: start: 2005
  7. FOLIC ACID [Concomitant]
     Indication: CARDIAC DISORDER
     Route: 048
     Dates: start: 201208
  8. SENOKOT [Concomitant]
     Indication: CONSTIPATION
     Dosage: 2 as needed
     Route: 048
  9. COLACE [Concomitant]
     Indication: CONSTIPATION
     Route: 048
     Dates: start: 201208, end: 201208
  10. PROCHLORPERAZINE [Concomitant]
     Indication: NAUSEA
     Dosage: as needed
     Route: 048
     Dates: start: 2012
  11. UNKNOWN MEDICATION [Concomitant]
     Indication: CHEMOTHERAPY
     Route: 042
     Dates: start: 201207
  12. DEXAMETHASONE [Concomitant]
     Indication: PRODUCT USED FOR UNKNOWN INDICATION
     Route: 048
     Dates: start: 201207

REACTIONS (3)
  - Wrong technique in drug usage process [Not Recovered/Not Resolved]
  - Drug administered at inappropriate site [Not Recovered/Not Resolved]
  - Product quality issue [Unknown]
